FAERS Safety Report 9693466 (Version 1)
Quarter: 2013Q4

REPORT INFORMATION
  Report Type: Spontaneous
  Country: US (occurrence: US)
  Receive Date: 20131118
  Receipt Date: 20131118
  Transmission Date: 20140711
  Serious: Yes (Hospitalization, Other)
  Sender: FDA-Public Use
  Company Number: US-PFIZER INC-2013325588

PATIENT
  Sex: Female

DRUGS (2)
  1. PREMARIN [Suspect]
     Dosage: 0.625 MG, UNK
  2. PROVERA [Suspect]
     Dosage: UNK

REACTIONS (2)
  - Pain in extremity [Unknown]
  - Road traffic accident [Unknown]
